FAERS Safety Report 6655164-6 (Version None)
Quarter: 2010Q1

REPORT INFORMATION
  Report Type: 
  Country: None (occurrence: None)
  Receive Date: 20100329
  Receipt Date: 20100319
  Transmission Date: 20100710
  Serious: No
  Sender: FDA-Public Use
  Company Number: US-ROXANE LABORATORIES, INC.-2010-RO-00349RO

PATIENT

DRUGS (1)
  1. METHADONE [Suspect]
     Dosage: 90 MG
     Dates: start: 20100315

REACTIONS (1)
  - DIARRHOEA [None]
